FAERS Safety Report 8778201 (Version 2)
Quarter: 2012Q4

REPORT INFORMATION
  Report Type: 
  Country: DE (occurrence: DE)
  Receive Date: 20120912
  Receipt Date: 20121019
  Transmission Date: 20130627
  Serious: Yes (Other)
  Sender: FDA-Public Use
  Company Number: DE-BAXTER-2012BAX016042

PATIENT
  Sex: Male
  Weight: 88 kg

DRUGS (2)
  1. ENDOXAN [Suspect]
     Indication: SMALL CELL LUNG CANCER
     Route: 042
     Dates: start: 20120416, end: 20120419
  2. DOXORUBICIN [Suspect]
     Indication: SMALL CELL LUNG CANCER
     Route: 042
     Dates: start: 20120416, end: 20120416

REACTIONS (2)
  - Fall [Not Recovered/Not Resolved]
  - Hypotonia [Not Recovered/Not Resolved]
